FAERS Safety Report 6256442-5 (Version None)
Quarter: 2009Q3

REPORT INFORMATION
  Report Type: 
  Country: None (occurrence: None)
  Receive Date: 20090706
  Receipt Date: 20090630
  Transmission Date: 20100115
  Serious: Yes (Life-Threatening)
  Sender: FDA-Public Use
  Company Number: GB-JNJFOC-20090502996

PATIENT
  Sex: Female

DRUGS (5)
  1. DURAGESIC-100 [Suspect]
     Indication: PROCEDURAL PAIN
     Route: 062
  2. FENTANYL CITRATE [Suspect]
     Indication: PROCEDURAL PAIN
     Route: 008
  3. DIAMORPHINE [Suspect]
     Indication: PROCEDURAL PAIN
     Route: 008
  4. BUPIVACAINE [Suspect]
     Indication: PROCEDURAL PAIN
     Route: 008
  5. UNSPECIFIED SLEEPING AGENTS [Suspect]
     Indication: DRUG USE FOR UNKNOWN INDICATION

REACTIONS (11)
  - BODY TEMPERATURE INCREASED [None]
  - DISORIENTATION [None]
  - HALLUCINATION, VISUAL [None]
  - LOSS OF CONSCIOUSNESS [None]
  - NIGHT SWEATS [None]
  - OFF LABEL USE [None]
  - OVERDOSE [None]
  - PNEUMONITIS [None]
  - PULMONARY OEDEMA [None]
  - VOMITING [None]
  - WHITE BLOOD CELL COUNT INCREASED [None]
